FAERS Safety Report 4926747-6 (Version None)
Quarter: 2006Q1

REPORT INFORMATION
  Report Type: 
  Country: None (occurrence: None)
  Receive Date: 20060228
  Receipt Date: 20050609
  Transmission Date: 20060701
  Serious: Yes (Disabling)
  Sender: FDA-Public Use
  Company Number: US-GLAXOSMITHKLINE-A0562000A

PATIENT
  Age: 29 Year
  Sex: Male
  Weight: 63.2 kg

DRUGS (1)
  1. LAMICTAL [Suspect]
     Route: 048

REACTIONS (3)
  - RASH [None]
  - URTICARIA [None]
  - URTICARIA CHRONIC [None]
